APPROVED DRUG PRODUCT: ANDRODERM
Active Ingredient: TESTOSTERONE
Strength: 2.5MG/24HR
Dosage Form/Route: FILM, EXTENDED RELEASE;TRANSDERMAL
Application: N020489 | Product #001
Applicant: ABBVIE INC
Approved: Sep 29, 1995 | RLD: No | RS: No | Type: DISCN